FAERS Safety Report 20365491 (Version 9)
Quarter: 2022Q3

REPORT INFORMATION
  Report Type: Spontaneous
  Country: SA (occurrence: SA)
  Receive Date: 20220122
  Receipt Date: 20220905
  Transmission Date: 20221027
  Serious: Yes (Hospitalization, Disabling, Other)
  Sender: FDA-Public Use
  Company Number: SA-NOVARTISPH-NVSC2022SA009322

PATIENT
  Age: 56 Year
  Sex: Female

DRUGS (5)
  1. ADAKVEO [Suspect]
     Active Substance: CRIZANLIZUMAB-TMCA
     Indication: Sickle cell disease
     Dosage: 3RD DOSE
     Route: 065
  2. ADAKVEO [Suspect]
     Active Substance: CRIZANLIZUMAB-TMCA
     Dosage: 7TH DOSE
     Route: 065
     Dates: start: 20220424
  3. ADAKVEO [Suspect]
     Active Substance: CRIZANLIZUMAB-TMCA
     Dosage: UNK (8TH DOSE)
     Route: 065
     Dates: start: 20220726
  4. ADAKVEO [Suspect]
     Active Substance: CRIZANLIZUMAB-TMCA
     Dosage: UNK (9TH DOSE)
     Route: 065
     Dates: start: 20220830
  5. VIREAD [Concomitant]
     Active Substance: TENOFOVIR DISOPROXIL FUMARATE
     Indication: Hepatitis B
     Dosage: 245 MG
     Route: 048
     Dates: start: 202203

REACTIONS (10)
  - Gait disturbance [Not Recovered/Not Resolved]
  - Pain [Not Recovered/Not Resolved]
  - Headache [Recovered/Resolved]
  - Headache [Recovering/Resolving]
  - Sickle cell disease [Not Recovered/Not Resolved]
  - Volume blood decreased [Recovered/Resolved]
  - Urinary tract infection [Recovered/Resolved]
  - Oedema peripheral [Recovered/Resolved]
  - Wheezing [Recovered/Resolved]
  - Pyrexia [Not Recovered/Not Resolved]
